FAERS Safety Report 4955382-9 (Version None)
Quarter: 2006Q1

REPORT INFORMATION
  Report Type: 
  Country: None (occurrence: None)
  Receive Date: 20060322
  Receipt Date: 20060222
  Transmission Date: 20060701
  Serious: No
  Sender: FDA-Public Use
  Company Number: 2006PV007989

PATIENT
  Age: 63 Year
  Sex: Female
  Weight: 96.1626 kg

DRUGS (19)
  1. BYETTA [Suspect]
     Indication: DIABETES MELLITUS NON-INSULIN-DEPENDENT
     Dosage: SEE IMAGE
     Route: 058
     Dates: start: 20051207, end: 20060103
  2. BYETTA [Suspect]
     Indication: DIABETES MELLITUS NON-INSULIN-DEPENDENT
     Dosage: SEE IMAGE
     Route: 058
     Dates: start: 20060104, end: 20060118
  3. BYETTA [Suspect]
     Indication: DIABETES MELLITUS NON-INSULIN-DEPENDENT
     Dosage: SEE IMAGE
     Route: 058
     Dates: start: 20060123, end: 20060222
  4. BYETTA [Suspect]
     Indication: DIABETES MELLITUS NON-INSULIN-DEPENDENT
     Dosage: SEE IMAGE
     Route: 058
     Dates: start: 20060222
  5. ULTRAM [Concomitant]
  6. AMARYL [Concomitant]
  7. FOSAMAX [Concomitant]
  8. LISINOPRIL [Concomitant]
  9. AVANDIA [Concomitant]
  10. FLEXERIL [Concomitant]
  11. NAPROXEN SODIUM [Concomitant]
  12. HYDROCHLOROTHIAZIDE [Concomitant]
  13. VITAMIN D [Concomitant]
  14. ACTOS [Concomitant]
  15. GLUCOPHAGE [Concomitant]
  16. FLUOXETINE HCL [Concomitant]
  17. ADVAIR DISKUS 100/50 [Concomitant]
  18. ASPIRIN [Concomitant]
  19. LIPITOR [Concomitant]

REACTIONS (11)
  - BLOOD GLUCOSE DECREASED [None]
  - BLOOD GLUCOSE INCREASED [None]
  - CONDITION AGGRAVATED [None]
  - DECREASED APPETITE [None]
  - DIZZINESS [None]
  - LIPASE INCREASED [None]
  - MALAISE [None]
  - NAUSEA [None]
  - SHOULDER PAIN [None]
  - VOMITING [None]
  - WEIGHT DECREASED [None]
